FAERS Safety Report 10184883 (Version 2)
Quarter: 2014Q2

REPORT INFORMATION
  Report Type: Spontaneous
  Country: IE (occurrence: IE)
  Receive Date: 20140521
  Receipt Date: 20140521
  Transmission Date: 20141212
  Serious: Yes (Death)
  Sender: FDA-Public Use
  Company Number: IE-AMGEN-IRLSP2014023895

PATIENT
  Age: 89 Year
  Sex: Male

DRUGS (1)
  1. ARANESP [Suspect]
     Indication: RENAL FAILURE CHRONIC
     Dosage: 30 MUG, QWK
     Route: 058
     Dates: start: 20120704

REACTIONS (5)
  - Death [Fatal]
  - Asthenia [Unknown]
  - Lethargy [Unknown]
  - Blood pressure abnormal [Unknown]
  - Haemoglobin abnormal [Unknown]
